FAERS Safety Report 6594631-0 (Version None)
Quarter: 2010Q1

REPORT INFORMATION
  Report Type: 
  Country: None (occurrence: None)
  Receive Date: 20100222
  Receipt Date: 20090910
  Transmission Date: 20100710
  Serious: No
  Sender: FDA-Public Use
  Company Number: US-BRISTOL-MYERS SQUIBB COMPANY-14773402

PATIENT
  Age: 67 Year
  Sex: Female
  Weight: 85 kg

DRUGS (4)
  1. TAXOL [Suspect]
     Indication: BREAST CANCER
     Dates: start: 20090325, end: 20090506
  2. PEPCID [Concomitant]
  3. STEROIDS [Concomitant]
     Indication: PREMEDICATION
  4. LEVOTHYROXINE SODIUM [Concomitant]

REACTIONS (7)
  - ARTHRALGIA [None]
  - DRY MOUTH [None]
  - FURUNCLE [None]
  - GINGIVAL HYPOPLASIA [None]
  - NEUROPATHY PERIPHERAL [None]
  - OEDEMA PERIPHERAL [None]
  - PHLEBITIS [None]
